FAERS Safety Report 7180682-4 (Version None)
Quarter: 2010Q4

REPORT INFORMATION
  Report Type: 
  Country: None (occurrence: None)
  Receive Date: 20101221
  Receipt Date: 20101216
  Transmission Date: 20110411
  Serious: Yes (Death, Other)
  Sender: FDA-Public Use
  Company Number: AU-AMGEN-AUSSP2010009876

PATIENT

DRUGS (1)
  1. VECTIBIX [Suspect]
     Indication: COLORECTAL CANCER

REACTIONS (5)
  - INTESTINAL INFARCTION [None]
  - MALIGNANT NEOPLASM PROGRESSION [None]
  - METASTASES TO LIVER [None]
  - METASTASES TO LUNG [None]
  - RASH [None]
